FAERS Safety Report 14893019 (Version 1)
Quarter: 2018Q2

REPORT INFORMATION
  Report Type: Spontaneous
  Country: US (occurrence: US)
  Receive Date: 20180426
  Receipt Date: 20180426
  Transmission Date: 20180711
  Serious: No
  Sender: FDA-Public Use
  Company Number: None

PATIENT
  Age: 54 Year
  Sex: Female
  Weight: 108 kg

DRUGS (6)
  1. VITAMIN D [Concomitant]
     Active Substance: CHOLECALCIFEROL
  2. XANTAC [Concomitant]
  3. ADVIL [Concomitant]
     Active Substance: IBUPROFEN
  4. MYOBLOC [Suspect]
     Active Substance: RIMABOTULINUMTOXINB
     Indication: TORTICOLLIS
     Route: 030
     Dates: start: 20180329
  5. LEVOTHYROXINE. [Concomitant]
     Active Substance: LEVOTHYROXINE
  6. VITAMIN B12 [Concomitant]
     Active Substance: CYANOCOBALAMIN

REACTIONS (2)
  - Ill-defined disorder [None]
  - Vomiting [None]

NARRATIVE: CASE EVENT DATE: 20180421
